FAERS Safety Report 8172954-1 (Version None)
Quarter: 2012Q1

REPORT INFORMATION
  Report Type: 
  Country: None (occurrence: None)
  Receive Date: 20120229
  Receipt Date: 20120222
  Transmission Date: 20120608
  Serious: No
  Sender: FDA-Public Use
  Company Number: US-BAYER-2012-019431

PATIENT
  Sex: Female

DRUGS (7)
  1. BETASERON [Suspect]
     Dosage: 0.3 MG, UNK
     Route: 058
  2. OXYBUTYNIN [Concomitant]
     Dosage: 5 MG, UNK
     Route: 048
  3. MULTI-VITAMIN [Concomitant]
     Route: 048
  4. DULCOLAX [DOCUSATE SODIUM] [Concomitant]
     Dosage: 5 MG, UNK
     Route: 048
  5. NALTREXONE HYDROCHLORIDE [Concomitant]
     Dosage: 50 MG, UNK
     Route: 048
  6. NEOCON [Concomitant]
     Dosage: 1/35-28 MG, UNK
     Route: 048
  7. ADVIL PM [Concomitant]
     Dosage: 200-25 MG, UNK
     Route: 048

REACTIONS (4)
  - ALCOHOL INTOLERANCE [None]
  - SWOLLEN TONGUE [None]
  - LIP SWELLING [None]
  - EYE SWELLING [None]
